FAERS Safety Report 25812676 (Version 1)
Quarter: 2025Q3

REPORT INFORMATION
  Report Type: Spontaneous
  Country: MY (occurrence: MY)
  Receive Date: 20250917
  Receipt Date: 20250917
  Transmission Date: 20251020
  Serious: Yes (Death)
  Sender: OTSUKA
  Company Number: MY-LUNDBECK-DKLU4019257

PATIENT

DRUGS (2)
  1. BREXPIPRAZOLE [Suspect]
     Active Substance: BREXPIPRAZOLE
     Indication: Major depression
     Dosage: 1 MILLIGRAM
     Route: 048
     Dates: start: 20250715, end: 20250729
  2. BREXPIPRAZOLE [Suspect]
     Active Substance: BREXPIPRAZOLE
     Dosage: 2 MILLIGRAM
     Route: 048
     Dates: start: 20250730, end: 20250829

REACTIONS (1)
  - Diabetes mellitus [Fatal]
